FAERS Safety Report 9471633 (Version 6)
Quarter: 2014Q2

REPORT INFORMATION
  Report Type: Spontaneous
  Country: US (occurrence: US)
  Receive Date: 20130822
  Receipt Date: 20140501
  Transmission Date: 20141212
  Serious: No
  Sender: FDA-Public Use
  Company Number: US-009507513-1308USA008016

PATIENT
  Sex: Male

DRUGS (13)
  1. VICTRELIS [Suspect]
     Indication: CHRONIC HEPATITIS C
     Dosage: UNK
     Dates: start: 20130809
  2. PEGASYS [Suspect]
     Indication: CHRONIC HEPATITIS C
     Dosage: 180 MICROGRAM, QW
     Route: 058
     Dates: start: 20130712
  3. RIBASPHERE [Suspect]
     Indication: CHRONIC HEPATITIS C
     Dosage: 1200 MG DIVIDED DOSES DAILY
     Route: 048
     Dates: start: 20130710
  4. RIBASPHERE [Suspect]
     Dosage: DIVIDED DOSES (600/400) DAILY
     Route: 048
     Dates: start: 20130712
  5. RIBASPHERE [Suspect]
     Dosage: 600 MG, QD
     Route: 048
     Dates: start: 20130808
  6. RIBASPHERE [Suspect]
     Dosage: 1000MG, QD
     Route: 048
     Dates: start: 20130827
  7. RIBASPHERE [Suspect]
     Dosage: 800 MG, QD
     Route: 048
     Dates: start: 20131001
  8. RIBASPHERE [Suspect]
     Dosage: 600 MG, QD
     Route: 048
     Dates: start: 20131031
  9. RIBASPHERE [Suspect]
     Dosage: UNK
     Route: 048
  10. RIBASPHERE [Suspect]
     Dosage: UNK
     Route: 048
     Dates: start: 2014
  11. METFORMIN HYDROCHLORIDE [Concomitant]
     Indication: TYPE 2 DIABETES MELLITUS
     Dosage: 1000 MG, BID
  12. NORVASC [Concomitant]
     Indication: HYPERTENSION
     Dosage: 10 MG, QD
  13. PROCRIT [Concomitant]
     Dosage: 1 DF, QW
     Dates: start: 201310, end: 20131101

REACTIONS (13)
  - Blood count abnormal [Recovering/Resolving]
  - Feeling abnormal [Unknown]
  - Injection site pruritus [Unknown]
  - Chromaturia [Unknown]
  - Injection site erythema [Unknown]
  - Abdominal pain [Recovered/Resolved]
  - Lip dry [Unknown]
  - Diarrhoea [Recovered/Resolved]
  - Asthenia [Unknown]
  - Fatigue [Unknown]
  - Rash [Unknown]
  - Dry mouth [Unknown]
  - Dry skin [Unknown]
